FAERS Safety Report 10100883 (Version 1)
Quarter: 2014Q2

REPORT INFORMATION
  Report Type: Spontaneous
  Country: BR (occurrence: BR)
  Receive Date: 20140423
  Receipt Date: 20140423
  Transmission Date: 20141212
  Serious: Yes (Hospitalization, Other)
  Sender: FDA-Public Use
  Company Number: BR-ELI_LILLY_AND_COMPANY-BR201404003895

PATIENT
  Sex: Female
  Weight: 60 kg

DRUGS (2)
  1. HUMALOG MIX 50 [Suspect]
     Indication: DIABETES MELLITUS INADEQUATE CONTROL
     Dosage: UNK, QD
     Route: 058
  2. LEVEMIR [Concomitant]
     Indication: PRODUCT USED FOR UNKNOWN INDICATION
     Dosage: UNK, UNKNOWN
     Route: 065

REACTIONS (8)
  - Pneumonia [Not Recovered/Not Resolved]
  - Blood sodium decreased [Not Recovered/Not Resolved]
  - Appendicitis [Not Recovered/Not Resolved]
  - Injection site mass [Not Recovered/Not Resolved]
  - Pain in extremity [Not Recovered/Not Resolved]
  - Medication error [Unknown]
  - Blood glucose fluctuation [Not Recovered/Not Resolved]
  - Injection site pain [Not Recovered/Not Resolved]
